FAERS Safety Report 5621159-4 (Version None)
Quarter: 2008Q1

REPORT INFORMATION
  Report Type: 
  Country: None (occurrence: None)
  Receive Date: 20080114
  Receipt Date: 20061205
  Transmission Date: 20080703
  Serious: Yes (Hospitalization)
  Sender: FDA-Public Use
  Company Number: A03200607239

PATIENT
  Age: 72 Year
  Sex: Female
  Weight: 65.76 kg

DRUGS (13)
  1. PLAVIX [Suspect]
     Indication: MYOCARDIAL INFARCTION
     Dosage: 75 MG QD - ORAL
     Route: 048
     Dates: start: 20051028, end: 20060101
  2. PLAVIX [Suspect]
     Indication: STENT PLACEMENT
     Dosage: 75 MG QD - ORAL
     Route: 048
     Dates: start: 20051028, end: 20060101
  3. PLAVIX [Suspect]
     Indication: MYOCARDIAL INFARCTION
     Dosage: 75 MG QD - ORAL
     Route: 048
     Dates: start: 20061219
  4. PLAVIX [Suspect]
     Indication: STENT PLACEMENT
     Dosage: 75 MG QD - ORAL
     Route: 048
     Dates: start: 20061219
  5. ATORVASTATIN CALCIUM [Concomitant]
  6. EZETIMIBE [Concomitant]
  7. METOPROLOL TARTRATE [Concomitant]
  8. ESCITALOPRAM OXALATE [Concomitant]
  9. THYROID HORMONES [Concomitant]
  10. TIOTROPIUM BROMIDE MONOHYDRATE [Concomitant]
  11. MOMETASONE FUROATE [Concomitant]
  12. ALBUTEROL [Concomitant]
  13. ACETYLSALICYLIC ACID SRT [Concomitant]

REACTIONS (2)
  - CORONARY ARTERY OCCLUSION [None]
  - RASH PRURITIC [None]
